FAERS Safety Report 5831066-X (Version None)
Quarter: 2008Q3

REPORT INFORMATION
  Report Type: 
  Country: None (occurrence: None)
  Receive Date: 20080801
  Receipt Date: 20080325
  Transmission Date: 20090109
  Serious: No
  Sender: FDA-Public Use
  Company Number: US-BRISTOL-MYERS SQUIBB COMPANY-14125165

PATIENT
  Age: 87 Year
  Sex: Female
  Weight: 43 kg

DRUGS (4)
  1. COUMADIN [Suspect]
     Indication: PALPITATIONS
     Dosage: TOOK LONG TIME AGO, RESTARTED ABOUT 3-4 MONTHS AGO;4MG/DAY MON-FRI+ 2MG/DAY  SAT-SUN
  2. JANTOVEN [Suspect]
     Dates: end: 20080301
  3. LASIX [Concomitant]
  4. EVISTA [Concomitant]

REACTIONS (1)
  - RASH [None]
